FAERS Safety Report 4698848-1 (Version None)
Quarter: 2005Q2

REPORT INFORMATION
  Report Type: 
  Country: None (occurrence: None)
  Receive Date: 20050623
  Receipt Date: 20050607
  Transmission Date: 20051028
  Serious: Yes (Other)
  Sender: FDA-Public Use
  Company Number: L05-NLD-02135-01

PATIENT
  Sex: Female

DRUGS (1)
  1. INDOMETHACIN [Suspect]

REACTIONS (3)
  - FLATULENCE [None]
  - INTESTINAL INFARCTION [None]
  - SMALL INTESTINAL PERFORATION [None]
